FAERS Safety Report 9531709 (Version 1)
Quarter: 2013Q3

REPORT INFORMATION
  Report Type: Spontaneous
  Country: DE (occurrence: DE)
  Receive Date: 20130918
  Receipt Date: 20130918
  Transmission Date: 20140515
  Serious: Yes (Hospitalization)
  Sender: FDA-Public Use
  Company Number: DE-UCBSA-097476

PATIENT
  Age: 87 Year
  Sex: Male
  Weight: 68 kg

DRUGS (4)
  1. KEPPRA [Suspect]
     Dosage: 1000 MG FILM COATED TABLET. UNKNOWN TOTAL AMOUNT
  2. MIRTAZAPIN [Suspect]
     Dosage: TOTAL AMOUNT-30 MG . 1 TABLET:
  3. SAROTEN [Suspect]
     Dosage: 1 TABLET. TOTAL AMOUNT-25 MG
  4. VENLAFAXIN [Suspect]
     Dosage: 1 TABLET. TOTAL AMOUNT-75 MG

REACTIONS (2)
  - Fall [Unknown]
  - Accidental exposure to product [Unknown]
